FAERS Safety Report 6182338-3 (Version None)
Quarter: 2009Q2

REPORT INFORMATION
  Report Type: 
  Country: None (occurrence: None)
  Receive Date: 20090505
  Receipt Date: 20090505
  Transmission Date: 20091009
  Serious: Yes (Hospitalization, Other)
  Sender: FDA-Public Use
  Company Number: None

PATIENT
  Age: 81 Year
  Sex: Male
  Weight: 53.978 kg

DRUGS (1)
  1. EXJADE [Suspect]
     Indication: IRON OVERLOAD
     Dosage: 1000MG BID PO
     Route: 048
     Dates: start: 20070701, end: 20090419

REACTIONS (4)
  - BLOOD CREATININE INCREASED [None]
  - DYSPHAGIA [None]
  - OESOPHAGITIS [None]
  - WEIGHT DECREASED [None]
